FAERS Safety Report 23573165 (Version 1)
Quarter: 2024Q1

REPORT INFORMATION
  Report Type: Spontaneous
  Country: IT (occurrence: IT)
  Receive Date: 20240227
  Receipt Date: 20240227
  Transmission Date: 20240410
  Serious: Yes (Other)
  Sender: FDA-Public Use
  Company Number: IT-Accord-404219

PATIENT
  Age: 71 Year
  Sex: Female

DRUGS (6)
  1. CARBOPLATIN [Suspect]
     Active Substance: CARBOPLATIN
     Indication: Thyroid cancer
     Dosage: AUC5 ON 1 DAY
     Route: 065
     Dates: start: 202109
  2. CARBOPLATIN [Suspect]
     Active Substance: CARBOPLATIN
     Indication: Neuroendocrine tumour
     Dosage: AUC5 ON 1 DAY
     Route: 065
     Dates: start: 202201
  3. CARBOPLATIN [Suspect]
     Active Substance: CARBOPLATIN
     Indication: Laryngeal cancer
  4. ETOPOSIDE [Suspect]
     Active Substance: ETOPOSIDE
     Indication: Thyroid cancer
     Dosage: 100 MILLIGRAM/SQ. METER(ON DAYS 1-3)
     Route: 065
     Dates: start: 202109
  5. ETOPOSIDE [Suspect]
     Active Substance: ETOPOSIDE
     Indication: Febrile neutropenia
  6. PHENYTOIN [Concomitant]
     Active Substance: PHENYTOIN
     Indication: Glossopharyngeal neuralgia
     Dosage: UNK
     Route: 065
     Dates: start: 202201

REACTIONS (4)
  - Diarrhoea [Unknown]
  - Nausea [Unknown]
  - Drug ineffective [Unknown]
  - Off label use [Unknown]

NARRATIVE: CASE EVENT DATE: 20210901
